FAERS Safety Report 7238170-2 (Version None)
Quarter: 2011Q1

REPORT INFORMATION
  Report Type: 
  Country: None (occurrence: None)
  Receive Date: 20110119
  Receipt Date: 20110119
  Transmission Date: 20110831
  Serious: Yes (Other)
  Sender: FDA-Public Use
  Company Number: None

PATIENT
  Sex: Female

DRUGS (2)
  1. COPAXONE [Suspect]
     Indication: MULTIPLE SCLEROSIS
     Dosage: 20MG QD SQ
     Route: 058
     Dates: start: 20091223, end: 20110118
  2. TRIAD ALCOHOL PREP PADS TRIAD GROUP [Suspect]
     Dates: start: 20091223, end: 20110118

REACTIONS (6)
  - PHARYNGEAL ERYTHEMA [None]
  - ABDOMINAL PAIN UPPER [None]
  - PURULENCE [None]
  - VAGINAL INFECTION [None]
  - GASTRIC DISORDER [None]
  - BACILLUS INFECTION [None]
